FAERS Safety Report 9904627 (Version 1)
Quarter: 2014Q1

REPORT INFORMATION
  Report Type: Spontaneous
  Country: JP (occurrence: JP)
  Receive Date: 20140218
  Receipt Date: 20140218
  Transmission Date: 20141002
  Serious: Yes (Death)
  Sender: FDA-Public Use
  Company Number: JP-ASTELLAS-2014US001581

PATIENT
  Age: 85 Year
  Sex: Female

DRUGS (1)
  1. AMBISOME [Suspect]
     Indication: ENDOCARDITIS
     Dosage: 100 MG, UID/QD
     Route: 041
     Dates: start: 20140107, end: 20140201

REACTIONS (1)
  - Death [Fatal]
